FAERS Safety Report 5841526-3 (Version None)
Quarter: 2008Q3

REPORT INFORMATION
  Report Type: 
  Country: None (occurrence: None)
  Receive Date: 20080812
  Receipt Date: 20080804
  Transmission Date: 20090109
  Serious: Yes (Other)
  Sender: FDA-Public Use
  Company Number: US-AMGEN-QUU247690

PATIENT
  Sex: Female
  Weight: 64.9 kg

DRUGS (11)
  1. ENBREL [Suspect]
     Indication: RHEUMATOID ARTHRITIS
     Route: 058
     Dates: start: 20070412
  2. METHOTREXATE [Concomitant]
     Route: 048
     Dates: start: 20000101
  3. PREDNISONE TAB [Concomitant]
     Dates: start: 20010101
  4. NORVASC [Concomitant]
  5. TOPROL-XL [Concomitant]
  6. DIAZEPAM [Concomitant]
  7. ACIPHEX [Concomitant]
  8. ASPIRIN [Concomitant]
  9. FAMOTIDINE [Concomitant]
  10. MECLIZINE [Concomitant]
  11. FOLIC ACID [Concomitant]
     Dates: start: 20000101

REACTIONS (23)
  - ACNE [None]
  - ALOPECIA [None]
  - ARTHRALGIA [None]
  - BLOOD PRESSURE INCREASED [None]
  - BOWEN'S DISEASE [None]
  - CONTUSION [None]
  - DIZZINESS [None]
  - FALL [None]
  - HEAD INJURY [None]
  - HEADACHE [None]
  - HYPOACUSIS [None]
  - JOINT DISLOCATION [None]
  - LACERATION [None]
  - LOSS OF CONSCIOUSNESS [None]
  - MALAISE [None]
  - MOVEMENT DISORDER [None]
  - MUSCULOSKELETAL PAIN [None]
  - PALLOR [None]
  - RASH ERYTHEMATOUS [None]
  - RASH PAPULAR [None]
  - SKIN LACERATION [None]
  - SKIN LESION [None]
  - SQUAMOUS CELL CARCINOMA OF SKIN [None]
